FAERS Safety Report 23987509 (Version 1)
Quarter: 2024Q2

REPORT INFORMATION
  Report Type: Spontaneous
  Country: CA (occurrence: CA)
  Receive Date: 20240618
  Receipt Date: 20240618
  Transmission Date: 20240716
  Serious: Yes (Other)
  Sender: FDA-Public Use
  Company Number: CA-009507513-2406CAN005452

PATIENT
  Age: 62 Year
  Sex: Male
  Weight: 79.832 kg

DRUGS (1)
  1. JANUMET XR [Suspect]
     Active Substance: METFORMIN HYDROCHLORIDE\SITAGLIPTIN PHOSPHATE
     Indication: Type 2 diabetes mellitus
     Dosage: 2 EVERY 1 DAYS
     Route: 048

REACTIONS (3)
  - Burning sensation [Recovered/Resolved]
  - Lip swelling [Recovered/Resolved]
  - Product substitution issue [Recovered/Resolved]
